FAERS Safety Report 8596505-2 (Version None)
Quarter: 2012Q3

REPORT INFORMATION
  Report Type: 
  Country: None (occurrence: None)
  Receive Date: 20120815
  Receipt Date: 20120809
  Transmission Date: 20120928
  Serious: No
  Sender: FDA-Public Use
  Company Number: US-PFIZER INC-2012195583

PATIENT
  Age: 65 Year
  Sex: Male
  Weight: 116 kg

DRUGS (15)
  1. GLIPIZIDE [Concomitant]
     Indication: DIABETES MELLITUS
     Dosage: 45 MG, 2X/DAY
  2. SPIRIVA [Concomitant]
     Indication: CHRONIC OBSTRUCTIVE PULMONARY DISEASE
     Dosage: UNK, AS NEEDED
  3. CYCLOBENZAPRINE [Concomitant]
     Indication: MYALGIA
     Dosage: 10 MG,DAILY
  4. VIAGRA [Suspect]
     Dosage: 100 MG, DAILY
     Route: 048
     Dates: start: 20120807
  5. VENTOLIN [Concomitant]
     Indication: CHRONIC OBSTRUCTIVE PULMONARY DISEASE
     Dosage: 2 PUFFS, 3X/DAY
  6. FLUTICASONE PROPIONATE [Concomitant]
     Indication: CHRONIC OBSTRUCTIVE PULMONARY DISEASE
     Dosage: 250/50 UG, 2X/DAY
  7. MELOXICAM [Concomitant]
     Indication: ARTHRALGIA
     Dosage: 15 MG,DAILY
  8. OMEPRAZOLE [Concomitant]
     Indication: GASTROOESOPHAGEAL REFLUX DISEASE
     Dosage: 20 MG,DAILY
  9. HYDROMORPHONE [Concomitant]
     Indication: PAIN
     Dosage: 4 MG, 4X/DAY
  10. CYMBALTA [Concomitant]
     Indication: PAIN
     Dosage: 30 MG,DAILY
  11. VIAGRA [Suspect]
     Indication: ERECTILE DYSFUNCTION
     Dosage: 50 MG,DAILY
     Route: 048
     Dates: start: 20120806
  12. METFORMIN [Concomitant]
     Indication: DIABETES MELLITUS
     Dosage: 1000 MG, 2X/DAY
  13. POTASSIUM [Concomitant]
     Indication: BLOOD POTASSIUM DECREASED
     Dosage: 10 MEQ, 2X/DAY
  14. LISINOPRIL [Concomitant]
     Indication: HYPERTENSION
     Dosage: 20 MG,DAILY
  15. FUROSEMIDE [Concomitant]
     Indication: HYPERTENSION
     Dosage: 4 MG, AS NEEDED

REACTIONS (2)
  - DRUG EFFECT DECREASED [None]
  - DRUG INEFFECTIVE [None]
